FAERS Safety Report 6228103-X (Version None)
Quarter: 2009Q2

REPORT INFORMATION
  Report Type: 
  Country: None (occurrence: None)
  Receive Date: 20090612
  Receipt Date: 20090602
  Transmission Date: 20091009
  Serious: Yes (Other)
  Sender: FDA-Public Use
  Company Number: TR-ABBOTT-09P-161-0576938-00

PATIENT
  Age: 79 Year
  Sex: Male

DRUGS (2)
  1. WARFARIN SODIUM [Suspect]
     Indication: MYOCARDIAL INFARCTION
  2. WARFARIN SODIUM [Suspect]
     Indication: CEREBRAL ISCHAEMIA

REACTIONS (3)
  - INTESTINAL ISCHAEMIA [None]
  - INTESTINAL OBSTRUCTION [None]
  - INTRA-ABDOMINAL HAEMATOMA [None]
